FAERS Safety Report 7993614-3 (Version None)
Quarter: 2011Q4

REPORT INFORMATION
  Report Type: 
  Country: None (occurrence: None)
  Receive Date: 20111219
  Receipt Date: 20111208
  Transmission Date: 20120403
  Serious: Yes (Other)
  Sender: FDA-Public Use
  Company Number: US-ASTRAZENECA-2011SE67669

PATIENT
  Age: 39 Year
  Sex: Female

DRUGS (3)
  1. SEROQUEL [Suspect]
     Route: 048
  2. TYLENOL PM [Concomitant]
  3. TEGRETOL [Concomitant]

REACTIONS (6)
  - DRUG DOSE OMISSION [None]
  - CONVULSION [None]
  - TONGUE INJURY [None]
  - INSOMNIA [None]
  - PAIN [None]
  - POOR QUALITY SLEEP [None]
